FAERS Safety Report 5296481-4 (Version None)
Quarter: 2007Q2

REPORT INFORMATION
  Report Type: 
  Country: None (occurrence: None)
  Receive Date: 20070413
  Receipt Date: 20070403
  Transmission Date: 20071010
  Serious: Yes (Hospitalization)
  Sender: FDA-Public Use
  Company Number: US-PFIZER INC-2005099285

PATIENT
  Sex: Male
  Weight: 81.2 kg

DRUGS (6)
  1. SU-011,248 [Suspect]
     Indication: RENAL CANCER METASTATIC
     Route: 048
  2. PERCOCET [Concomitant]
     Indication: ABDOMINAL PAIN
     Route: 048
  3. SODIUM POLYSTYRENE SULFONATE [Concomitant]
     Indication: HYPERKALAEMIA
     Route: 048
  4. TUMS [Concomitant]
     Route: 048
  5. COMPAZINE [Concomitant]
     Indication: NAUSEA
     Route: 048
  6. VITAMIN CAP [Concomitant]
     Route: 048

REACTIONS (10)
  - ASCITES [None]
  - AZOTAEMIA [None]
  - DIABETES MELLITUS NON-INSULIN-DEPENDENT [None]
  - DRUG INEFFECTIVE [None]
  - DRUG INTOLERANCE [None]
  - DRUG TOXICITY [None]
  - HYPERKALAEMIA [None]
  - HYPONATRAEMIA [None]
  - METASTASES TO LUNG [None]
  - NAUSEA [None]
